FAERS Safety Report 4365351-8 (Version None)
Quarter: 2004Q2

REPORT INFORMATION
  Report Type: 
  Country: None (occurrence: None)
  Receive Date: 20040520
  Receipt Date: 20040512
  Transmission Date: 20050107
  Serious: Yes (Hospitalization)
  Sender: FDA-Public Use
  Company Number: MK200405-0273-1

PATIENT
  Age: 24 Year
  Sex: Female

DRUGS (1)
  1. TOFRANIL TAB [Suspect]
     Dosage: 500MG, ONE TIME

REACTIONS (16)
  - APTYALISM [None]
  - ARRHYTHMIA [None]
  - ATRIAL FIBRILLATION [None]
  - BLOOD BICARBONATE DECREASED [None]
  - BLOOD PH DECREASED [None]
  - BLOOD PRESSURE DECREASED [None]
  - CONVULSION [None]
  - DRY SKIN [None]
  - HEART RATE INCREASED [None]
  - LOSS OF CONSCIOUSNESS [None]
  - MOVEMENT DISORDER [None]
  - MYDRIASIS [None]
  - OVERDOSE [None]
  - OXYGEN SATURATION DECREASED [None]
  - PCO2 DECREASED [None]
  - PO2 DECREASED [None]
